FAERS Safety Report 8588424-2 (Version None)
Quarter: 2012Q3

REPORT INFORMATION
  Report Type: 
  Country: None (occurrence: None)
  Receive Date: 20120731
  Receipt Date: 20120719
  Transmission Date: 20120928
  Serious: Yes (Death, Hospitalization)
  Sender: FDA-Public Use
  Company Number: 2012ST000559

PATIENT
  Age: 66 Year
  Sex: Male

DRUGS (2)
  1. MATULANE [Suspect]
     Indication: BRAIN NEOPLASM MALIGNANT
     Dosage: 150 MG;QD;PO 100 MG;QD;PO
     Route: 048
     Dates: start: 20120409
  2. MATULANE [Suspect]
     Indication: BRAIN NEOPLASM MALIGNANT
     Dosage: 150 MG;QD;PO 100 MG;QD;PO
     Route: 048
     Dates: start: 20120409

REACTIONS (1)
  - CARDIAC DISORDER [None]
